FAERS Safety Report 4643625-0 (Version None)
Quarter: 2005Q2

REPORT INFORMATION
  Report Type: 
  Country: None (occurrence: None)
  Receive Date: 20050425
  Receipt Date: 20050329
  Transmission Date: 20051028
  Serious: Yes (Other)
  Sender: FDA-Public Use
  Company Number: DE-AMGEN-UK120267

PATIENT
  Sex: Male
  Weight: 99 kg

DRUGS (20)
  1. MIMPARA [Suspect]
     Indication: HYPERPARATHYROIDISM SECONDARY
     Route: 048
     Dates: start: 20050127, end: 20050315
  2. CARVEDILOL [Suspect]
     Route: 065
  3. ARANESP [Concomitant]
     Route: 042
  4. ROCALTROL [Concomitant]
     Route: 065
  5. MAGNESIUM VERLA DRAGEES [Concomitant]
     Route: 065
  6. GLURENORM [Concomitant]
     Route: 065
  7. VIAGRA [Concomitant]
     Route: 065
  8. VITAMIN D3 [Concomitant]
     Route: 065
  9. CALCIUM ACETATE [Concomitant]
     Route: 065
  10. VENOFER [Concomitant]
     Route: 065
  11. LISINOPRIL [Concomitant]
     Route: 065
  12. CLOPIDOGREL BISULFATE [Concomitant]
     Route: 065
  13. LEVODOPA [Concomitant]
     Route: 065
  14. PYRIDOXINE HCL [Concomitant]
     Route: 065
  15. FOLIC ACID [Concomitant]
     Route: 065
  16. CYANOCOBALAMIN [Concomitant]
     Route: 065
  17. CALCIUM POLYSTYRENE SULFONATE [Concomitant]
     Route: 065
  18. LEVOCETIRIZINE [Concomitant]
     Route: 065
  19. ALFUZOSIN [Concomitant]
     Route: 065
  20. THIAMINE HCL [Concomitant]
     Route: 065

REACTIONS (9)
  - ABDOMINAL DISCOMFORT [None]
  - BLOOD CREATINE PHOSPHOKINASE INCREASED [None]
  - BLOOD PARATHYROID HORMONE INCREASED [None]
  - BRONCHITIS [None]
  - LEUKOPENIA [None]
  - MYOGLOBIN BLOOD INCREASED [None]
  - PANCYTOPENIA [None]
  - SLEEP DISORDER [None]
  - UPPER RESPIRATORY TRACT INFECTION [None]
